FAERS Safety Report 14304185 (Version 1)
Quarter: 2017Q4

REPORT INFORMATION
  Report Type: Spontaneous
  Country: FR (occurrence: FR)
  Receive Date: 20171219
  Receipt Date: 20171219
  Transmission Date: 20180321
  Serious: Yes (Death, Other)
  Sender: FDA-Public Use
  Company Number: FR-OTSUKA-DJ201306717

PATIENT
  Age: 19 Year
  Sex: Male

DRUGS (2)
  1. ABILIFY [Suspect]
     Active Substance: ARIPIPRAZOLE
     Indication: PSYCHOTIC DISORDER
     Dosage: 20 MG, QD
     Route: 048
     Dates: start: 20121228
  2. ABILIFY [Suspect]
     Active Substance: ARIPIPRAZOLE
     Indication: SCHIZOPHRENIA
     Dosage: 10 MG, QD
     Route: 048
     Dates: start: 20121116, end: 20121228

REACTIONS (7)
  - Abdominal pain upper [Unknown]
  - Insomnia [Unknown]
  - Weight decreased [Unknown]
  - Malaise [Unknown]
  - Completed suicide [Fatal]
  - Vomiting [Unknown]
  - Dysarthria [Unknown]

NARRATIVE: CASE EVENT DATE: 20121208
